FAERS Safety Report 14880976 (Version 2)
Quarter: 2018Q2

REPORT INFORMATION
  Report Type: Report from Study
  Country: IL (occurrence: IL)
  Receive Date: 20180511
  Receipt Date: 20180618
  Transmission Date: 20180711
  Serious: Yes (Disabling, Other)
  Sender: FDA-Public Use
  Company Number: IL-ROCHE-2118196

PATIENT
  Age: 17 Year
  Sex: Female

DRUGS (1)
  1. COBIMETINIB. [Suspect]
     Active Substance: COBIMETINIB
     Indication: OPTIC GLIOMA
     Route: 065
     Dates: start: 201802

REACTIONS (3)
  - Rash [Recovering/Resolving]
  - Visual field defect [Not Recovered/Not Resolved]
  - Papilloedema [Not Recovered/Not Resolved]
